FAERS Safety Report 15457015 (Version 3)
Quarter: 2018Q4

REPORT INFORMATION
  Report Type: Report from Study
  Country: MX (occurrence: MX)
  Receive Date: 20181002
  Receipt Date: 20181012
  Transmission Date: 20190204
  Serious: Yes (Death, Hospitalization, Other)
  Sender: FDA-Public Use
  Company Number: MX-ACTELION-A-US2018-178983

PATIENT
  Age: 74 Year
  Sex: Female

DRUGS (4)
  1. SPIRONOLACTONE. [Concomitant]
     Active Substance: SPIRONOLACTONE
  2. VENTAVIS [Suspect]
     Active Substance: ILOPROST
     Indication: PULMONARY ARTERIAL HYPERTENSION
     Dosage: 1 DF, QD
     Route: 055
     Dates: start: 20180909, end: 20181005
  3. FUROSEMIDE. [Concomitant]
     Active Substance: FUROSEMIDE
  4. MICCIL [Concomitant]

REACTIONS (6)
  - Blood pressure decreased [Not Recovered/Not Resolved]
  - Embolism [Recovered/Resolved]
  - Cough [Not Recovered/Not Resolved]
  - Underdose [Unknown]
  - Infarction [Fatal]
  - Overdose [Unknown]

NARRATIVE: CASE EVENT DATE: 20180909
